FAERS Safety Report 5114875-4 (Version None)
Quarter: 2006Q3

REPORT INFORMATION
  Report Type: 
  Country: None (occurrence: None)
  Receive Date: 20060922
  Receipt Date: 20060922
  Transmission Date: 20061208
  Serious: Yes (Hospitalization)
  Sender: FDA-Public Use
  Company Number: None

PATIENT
  Sex: Female
  Weight: 160.1197 kg

DRUGS (9)
  1. EQUETRO [Suspect]
     Indication: BIPOLAR DISORDER
     Dosage: 700 MG BID ORAL
     Route: 048
     Dates: start: 20060630, end: 20060914
  2. EQUETRO [Suspect]
  3. LORITADINE [Concomitant]
  4. ADVAIR DISKUS 100/50 [Concomitant]
  5. COMBIVENT [Concomitant]
  6. ALBUTEROL [Concomitant]
  7. HYDROCHLOROTHIAZDE TAB [Concomitant]
  8. FLONASE [Concomitant]
  9. LITHIUM [Concomitant]

REACTIONS (7)
  - ASTHENIA [None]
  - CEREBROVASCULAR ACCIDENT [None]
  - DYSARTHRIA [None]
  - EAR PAIN [None]
  - HEADACHE [None]
  - HEMIPARESIS [None]
  - SPEECH DISORDER [None]
